FAERS Safety Report 8262068-4 (Version None)
Quarter: 2012Q2

REPORT INFORMATION
  Report Type: 
  Country: None (occurrence: None)
  Receive Date: 20120405
  Receipt Date: 20120402
  Transmission Date: 20120825
  Serious: Yes (Life-Threatening, Hospitalization, Other)
  Sender: FDA-Public Use
  Company Number: PHHY2012BR028517

PATIENT
  Sex: Female
  Weight: 61 kg

DRUGS (6)
  1. RASILEZ [Suspect]
     Indication: HYPERTENSION
     Dosage: 1 DF, PER DAY
     Route: 048
  2. HYGROTON [Suspect]
     Indication: HYPERTENSION
     Dosage: 1 DF, PER DAY
     Route: 048
  3. DIOVAN [Suspect]
     Indication: HYPERTENSION
     Dosage: 1 DF, PER DAY
     Route: 048
  4. MAGNE [Concomitant]
     Indication: ASTHENIA
  5. VALERIAN [Concomitant]
     Indication: EMOTIONAL DISORDER
     Dosage: 1 DF (1 CUP), PER DAY
     Route: 048
  6. MAGNE [Concomitant]
     Indication: FATIGUE
     Dosage: 1 DF, PER DAY
     Route: 048

REACTIONS (11)
  - ASTHENIA [None]
  - BREAST MASS [None]
  - CARDIAC ARREST [None]
  - SOMNOLENCE [None]
  - BLOOD PRESSURE INCREASED [None]
  - BUNDLE BRANCH BLOCK LEFT [None]
  - FATIGUE [None]
  - SENSATION OF HEAVINESS [None]
  - BLOOD PRESSURE DECREASED [None]
  - NERVOUSNESS [None]
  - VOMITING [None]
